FAERS Safety Report 9616777 (Version 2)
Quarter: 2013Q4

REPORT INFORMATION
  Report Type: Spontaneous
  Country: US (occurrence: US)
  Receive Date: 20131011
  Receipt Date: 20131030
  Transmission Date: 20140711
  Serious: No
  Sender: FDA-Public Use
  Company Number: US-BAXTER-2013BAX039033

PATIENT
  Age: 0 Day
  Sex: Female
  Weight: 1.9 kg

DRUGS (5)
  1. 10% DEXTROSE INJECTION [Suspect]
     Indication: SEPSIS NEONATAL
     Route: 042
     Dates: start: 20130916, end: 20130919
  2. 10% DEXTROSE INJECTION [Suspect]
     Indication: FLUID REPLACEMENT
     Route: 040
     Dates: start: 20130916, end: 20130916
  3. 10% DEXTROSE INJECTION [Suspect]
     Indication: HYPOGLYCAEMIA
  4. 10% DEXTROSE INJECTION [Suspect]
     Indication: DIABETES MELLITUS MANAGEMENT
  5. AMPICILLIN [Suspect]
     Indication: SEPSIS NEONATAL
     Route: 042
     Dates: start: 20130916, end: 20130919

REACTIONS (1)
  - Vasospasm [Recovered/Resolved]
